FAERS Safety Report 10382946 (Version 2)
Quarter: 2020Q2

REPORT INFORMATION
  Report Type: Report from Study
  Country: US (occurrence: US)
  Receive Date: 20140813
  Receipt Date: 20200626
  Transmission Date: 20200713
  Serious: Yes (Other)
  Sender: FDA-Public Use
  Company Number: US-SA-2014SA058593

PATIENT
  Age: 50 Year
  Sex: Male

DRUGS (2)
  1. AGALSIDASE BETA [Suspect]
     Active Substance: AGALSIDASE BETA
     Indication: FABRY^S DISEASE
     Dosage: 100 MG,QOW
     Route: 042
     Dates: start: 20090323
  2. AGALSIDASE BETA [Suspect]
     Active Substance: AGALSIDASE BETA
     Dosage: 105 MG, QOW
     Route: 042
     Dates: start: 20200508

REACTIONS (11)
  - Spinal disorder [Not Recovered/Not Resolved]
  - Decreased appetite [Unknown]
  - Aphasia [Not Recovered/Not Resolved]
  - Back pain [Not Recovered/Not Resolved]
  - Stent placement [Unknown]
  - Coronary artery disease [Unknown]
  - Arthralgia [Not Recovered/Not Resolved]
  - Abdominal pain [Recovered/Resolved]
  - Cerebrovascular accident [Not Recovered/Not Resolved]
  - Oedema peripheral [Unknown]
  - Chest pain [Recovered/Resolved]

NARRATIVE: CASE EVENT DATE: 201508
